FAERS Safety Report 26142102 (Version 2)
Quarter: 2025Q4

REPORT INFORMATION
  Report Type: Spontaneous
  Country: EU (occurrence: EU)
  Receive Date: 20251210
  Receipt Date: 20251214
  Transmission Date: 20260118
  Serious: Yes (Death, Life-Threatening)
  Sender: PFIZER
  Company Number: EU-PFIZER INC-PV202500142711

PATIENT
  Age: 63 Year
  Sex: Male

DRUGS (2)
  1. CYTARABINE [Suspect]
     Active Substance: CYTARABINE
     Indication: Acute myeloid leukaemia
     Dosage: MG/M2 EVERY 12 H ON DAYS +1, +3, AND +5
  2. MIDOSTAURIN [Suspect]
     Active Substance: MIDOSTAURIN
     Indication: Acute myeloid leukaemia
     Dosage: 50 MG, 2X/DAY

REACTIONS (6)
  - Haemorrhagic stroke [Fatal]
  - Acute myeloid leukaemia [Unknown]
  - Malignant neoplasm progression [Unknown]
  - Bone marrow failure [Unknown]
  - Haemorrhagic diathesis [Unknown]
  - Pancytopenia [Unknown]
